FAERS Safety Report 23312888 (Version 2)
Quarter: 2024Q4

REPORT INFORMATION
  Report Type: Report from Study
  Country: US (occurrence: US)
  Receive Date: 20231219
  Receipt Date: 20241029
  Transmission Date: 20250115
  Serious: Yes (Hospitalization, Other)
  Sender: TAKEDA
  Company Number: US-TAKEDA-2023TUS121021

PATIENT
  Sex: Male
  Weight: 82 kg

DRUGS (27)
  1. MARIBAVIR [Suspect]
     Active Substance: MARIBAVIR
     Indication: Cytomegalovirus infection
     Dosage: 200 MILLIGRAM, BID
     Route: 065
     Dates: start: 20230123
  2. MARIBAVIR [Suspect]
     Active Substance: MARIBAVIR
     Dosage: 400 MILLIGRAM, BID
     Route: 065
  3. MARIBAVIR [Suspect]
     Active Substance: MARIBAVIR
     Dosage: 400 MILLIGRAM, BID
     Route: 065
     Dates: start: 20241021
  4. LEVOFLOXACIN [Concomitant]
     Active Substance: LEVOFLOXACIN
     Dosage: UNK
     Route: 065
  5. KEFLEX [Concomitant]
     Active Substance: CEPHALEXIN
     Dosage: UNK
     Route: 065
  6. VALCYTE [Concomitant]
     Active Substance: VALGANCICLOVIR HYDROCHLORIDE
     Dosage: 900 MILLIGRAM, BID
     Route: 065
  7. PREDNISONE [Concomitant]
     Active Substance: PREDNISONE
     Dosage: 50 MILLIGRAM, QD
     Route: 065
  8. PREDNISONE [Concomitant]
     Active Substance: PREDNISONE
     Dosage: 5 MILLIGRAM, QD
     Route: 048
  9. GANCICLOVIR [Concomitant]
     Active Substance: GANCICLOVIR
     Dosage: UNK
     Route: 042
  10. FOSCARNET [Concomitant]
     Active Substance: FOSCARNET
     Dosage: UNK
     Route: 065
     Dates: start: 20230111
  11. NEUPOGEN [Concomitant]
     Active Substance: FILGRASTIM
     Dosage: UNK
     Route: 065
     Dates: start: 202304
  12. KETOCONAZOLE [Concomitant]
     Active Substance: KETOCONAZOLE
     Dosage: 100 MILLIGRAM, QD
     Route: 048
  13. LETERMOVIR [Concomitant]
     Active Substance: LETERMOVIR
     Dosage: UNK
     Route: 065
     Dates: start: 20230626
  14. ASPIRIN [Concomitant]
     Active Substance: ASPIRIN
     Dosage: 81 MILLIGRAM, QD
     Route: 048
  15. CARVEDILOL [Concomitant]
     Active Substance: CARVEDILOL
     Dosage: 25 MILLIGRAM, BID
     Route: 048
  16. CHOLECALCIFEROL [Concomitant]
     Active Substance: CHOLECALCIFEROL
     Dosage: 1000 INTERNATIONAL UNIT, QD
     Route: 048
  17. CLONIDINE [Concomitant]
     Active Substance: CLONIDINE
     Dosage: 0.1 MILLIGRAM, BID
     Route: 048
  18. FERROUS SULFATE [Concomitant]
     Active Substance: FERROUS SULFATE
     Dosage: 324 MILLIGRAM, QD
     Route: 048
  19. FAMOTIDINE [Concomitant]
     Active Substance: FAMOTIDINE
  20. TAMSULOSIN [Concomitant]
     Active Substance: TAMSULOSIN
  21. FINASTERIDE [Concomitant]
     Active Substance: FINASTERIDE
     Dosage: 5 MILLIGRAM, QD
     Route: 048
  22. HYDRALAZINE [Concomitant]
     Active Substance: HYDRALAZINE HYDROCHLORIDE
     Dosage: 100 MILLIGRAM, BID
     Route: 048
  23. MYCOPHENOLIC ACID [Concomitant]
     Active Substance: MYCOPHENOLIC ACID
     Dosage: 180 MILLIGRAM, BID
     Route: 048
  24. NOVOLOG [Concomitant]
     Active Substance: INSULIN ASPART
     Dosage: 10 INTERNATIONAL UNIT, TID
     Route: 058
  25. ROSUVASTATIN [Concomitant]
     Active Substance: ROSUVASTATIN
     Dosage: 10 MILLIGRAM, QD
     Route: 048
  26. SODIUM BICARBONATE [Concomitant]
     Active Substance: SODIUM BICARBONATE
     Dosage: UNK UNK, BID
     Route: 048
  27. TACROLIMUS [Concomitant]
     Active Substance: TACROLIMUS
     Dosage: 2 MILLIGRAM, QD
     Route: 048

REACTIONS (20)
  - Nasopharyngitis [Unknown]
  - Tremor [Unknown]
  - Urosepsis [Unknown]
  - Haemorrhoids [Unknown]
  - Diverticulitis [Unknown]
  - Leukopenia [Unknown]
  - Septic shock [Recovering/Resolving]
  - Cytomegalovirus infection reactivation [Unknown]
  - Vomiting [Unknown]
  - Oedema peripheral [Unknown]
  - Urinary tract infection [Unknown]
  - Pain in extremity [Unknown]
  - Fall [Unknown]
  - Peripheral swelling [Unknown]
  - Respiratory syncytial virus infection [Unknown]
  - Night sweats [Not Recovered/Not Resolved]
  - Asthenia [Not Recovered/Not Resolved]
  - Chills [Not Recovered/Not Resolved]
  - Decreased appetite [Unknown]
  - Weight decreased [Unknown]
